FAERS Safety Report 8308186-3 (Version None)
Quarter: 2012Q2

REPORT INFORMATION
  Report Type: 
  Country: None (occurrence: None)
  Receive Date: 20120424
  Receipt Date: 20120417
  Transmission Date: 20120825
  Serious: Yes (Hospitalization)
  Sender: FDA-Public Use
  Company Number: FR-ROCHE-1060743

PATIENT
  Sex: Female

DRUGS (8)
  1. GLUCOPHAGE [Concomitant]
     Route: 048
  2. ATACAND [Concomitant]
     Route: 048
  3. NAPROXEN [Suspect]
     Indication: PRODUCT USED FOR UNKNOWN INDICATION
     Route: 048
     Dates: start: 20120127, end: 20120207
  4. XARELTO [Suspect]
     Indication: THROMBOSIS PROPHYLAXIS
     Route: 048
     Dates: start: 20120120, end: 20120207
  5. MORPHINE SULFATE [Concomitant]
     Route: 048
     Dates: start: 20120127, end: 20120130
  6. AUGMENTIN '125' [Concomitant]
     Dates: start: 20120130, end: 20120209
  7. MORPHINE SULFATE [Concomitant]
     Route: 048
     Dates: start: 20120124, end: 20120126
  8. FERROUS SULFATE TAB [Concomitant]
     Route: 048
     Dates: start: 20120130, end: 20120209

REACTIONS (1)
  - THROMBOCYTOSIS [None]
